FAERS Safety Report 16658204 (Version 4)
Quarter: 2019Q3

REPORT INFORMATION
  Report Type: Spontaneous
  Country: JP (occurrence: JP)
  Receive Date: 20190801
  Receipt Date: 20190918
  Transmission Date: 20191004
  Serious: Yes (Death, Life-Threatening, Hospitalization, Other)
  Sender: FDA-Public Use
  Company Number: JP-ASTRAZENECA-2019SE80989

PATIENT
  Age: 654 Month
  Sex: Female
  Weight: 51 kg

DRUGS (12)
  1. LYRICA [Concomitant]
     Active Substance: PREGABALIN
     Indication: CANCER PAIN
     Route: 048
     Dates: start: 20180828, end: 20190522
  2. AMBROXOL HYDROCHLORIDE L [Concomitant]
     Active Substance: AMBROXOL HYDROCHLORIDE
     Indication: UPPER RESPIRATORY TRACT INFLAMMATION
     Route: 048
     Dates: start: 20190508, end: 20190522
  3. LYNPARZA [Suspect]
     Active Substance: OLAPARIB
     Indication: BREAST CANCER
     Route: 048
     Dates: start: 20190508, end: 20190522
  4. L-CARBOCISTEINE [Concomitant]
     Active Substance: CARBOCYSTEINE
     Indication: UPPER RESPIRATORY TRACT INFLAMMATION
     Route: 048
     Dates: start: 20190508, end: 20190522
  5. CYMBALTA [Concomitant]
     Active Substance: DULOXETINE HYDROCHLORIDE
     Indication: CANCER PAIN
     Route: 048
     Dates: start: 20181116, end: 20190522
  6. FEXOFENADINE HYDROCHLORIDE. [Concomitant]
     Active Substance: FEXOFENADINE HYDROCHLORIDE
     Indication: DERMATITIS ALLERGIC
     Route: 048
     Dates: start: 20181026, end: 20190508
  7. MAGMITT [Concomitant]
     Active Substance: MAGNESIUM OXIDE
     Indication: CONSTIPATION
     Route: 048
     Dates: start: 20171108, end: 20190603
  8. FUROSEMIDE. [Concomitant]
     Active Substance: FUROSEMIDE
     Indication: OEDEMA
     Route: 048
     Dates: start: 20181116, end: 20190522
  9. ASTOMIN [Concomitant]
     Active Substance: DIMEMORFAN
     Indication: UPPER RESPIRATORY TRACT INFLAMMATION
     Route: 048
     Dates: start: 20190508, end: 20190522
  10. LYNPARZA [Suspect]
     Active Substance: OLAPARIB
     Indication: BREAST CANCER
     Route: 048
     Dates: start: 20190301, end: 20190409
  11. MYONAL [Concomitant]
     Indication: CANCER PAIN
     Route: 048
     Dates: start: 20190301, end: 20190522
  12. PANTETHINE [Concomitant]
     Active Substance: PANTETHINE
     Indication: CONSTIPATION
     Route: 048
     Dates: start: 20171108, end: 20190603

REACTIONS (7)
  - Metastases to central nervous system [Unknown]
  - Platelet count decreased [Recovered/Resolved]
  - Metastases to liver [Unknown]
  - Jaundice [Not Recovered/Not Resolved]
  - Metastases to bone [Unknown]
  - Nail disorder [Not Recovered/Not Resolved]
  - Anaemia [Not Recovered/Not Resolved]

NARRATIVE: CASE EVENT DATE: 201903
